FAERS Safety Report 17407900 (Version 7)
Quarter: 2021Q2

REPORT INFORMATION
  Report Type: Spontaneous
  Country: US (occurrence: US)
  Receive Date: 20200212
  Receipt Date: 20210524
  Transmission Date: 20210716
  Serious: Yes (Life-Threatening, Hospitalization, Other)
  Sender: FDA-Public Use
  Company Number: US-PFIZER INC-2019105467

PATIENT
  Age: 81 Year
  Sex: Female
  Weight: 63.96 kg

DRUGS (5)
  1. LYRICA [Suspect]
     Active Substance: PREGABALIN
     Dosage: 100 MG, 2X/DAY
     Route: 048
  2. LYRICA [Suspect]
     Active Substance: PREGABALIN
     Indication: FIBROMYALGIA
     Dosage: 100 MG, 2X/DAY
     Route: 048
  3. LYRICA [Suspect]
     Active Substance: PREGABALIN
     Dosage: 100 MG, 3X/DAY
     Dates: start: 201712
  4. LYRICA [Suspect]
     Active Substance: PREGABALIN
     Dosage: 100 MG, 2X/DAY (100MG TAKE IT WITH WATER TWICE A DAY)
  5. LYRICA [Suspect]
     Active Substance: PREGABALIN
     Indication: PAIN
     Dosage: UNK
     Dates: start: 201708

REACTIONS (11)
  - Coma [Recovered/Resolved]
  - Weight decreased [Unknown]
  - Frustration tolerance decreased [Unknown]
  - Illness [Unknown]
  - Renal failure [Recovering/Resolving]
  - Vomiting [Unknown]
  - Near death experience [Unknown]
  - Drug ineffective [Unknown]
  - Memory impairment [Recovered/Resolved]
  - Dehydration [Unknown]
  - Panic reaction [Unknown]

NARRATIVE: CASE EVENT DATE: 20200531
